FAERS Safety Report 17077252 (Version 4)
Quarter: 2020Q1

REPORT INFORMATION
  Report Type: Report from Study
  Country: NL (occurrence: NL)
  Receive Date: 20191126
  Receipt Date: 20200213
  Transmission Date: 20200409
  Serious: Yes (Hospitalization, Other)
  Sender: FDA-Public Use
  Company Number: NL-AMGEN-NLDSL2019194188

PATIENT
  Age: 59 Year
  Sex: Female

DRUGS (10)
  1. XGEVA [Suspect]
     Active Substance: DENOSUMAB
     Indication: PROPHYLAXIS
     Dosage: 120 MILLIGRAM/1,7ML 1 INJ, Q4WK
     Route: 065
     Dates: start: 20190917
  2. OXYCODON [Concomitant]
     Active Substance: OXYCODONE
     Dosage: 15 MILLIGRAM, 2XD 1T
  3. AMLODIPINE [Concomitant]
     Active Substance: AMLODIPINE BESYLATE
     Dosage: 5 MILLIGRAM, QD
  4. XGEVA [Suspect]
     Active Substance: DENOSUMAB
     Dosage: UNK
     Route: 065
  5. LETROZOL [Concomitant]
     Active Substance: LETROZOLE
     Dosage: 2.5 MILLIGRAM, 1XD 1T
  6. OXYCODON [Concomitant]
     Active Substance: OXYCODONE
     Dosage: 5 MILLIGRAM
  7. OXYCODON [Concomitant]
     Active Substance: OXYCODONE
     Dosage: 15 MILLIGRAM, 2XD 1T
  8. LISINOPRIL/HYDROCHLOORTHIAZIDE [Concomitant]
     Active Substance: HYDROCHLOROTHIAZIDE\LISINOPRIL
     Dosage: 20/12,5MG 1XD 1T
  9. CETOMACROGOL [Concomitant]
     Active Substance: COSMETICS
     Dosage: WITH VASELIN 20%
  10. CALCIUM CARBONATE;COLECALCIFEROL [Concomitant]
     Active Substance: CALCIUM CARBONATE\CHOLECALCIFEROL
     Dosage: 1,25G/880IE (500MG CA) 1XD 1T

REACTIONS (3)
  - Respiratory rate increased [Unknown]
  - Erysipelas [Recovered/Resolved]
  - Hypertension [Recovered/Resolved]

NARRATIVE: CASE EVENT DATE: 20191113
